FAERS Safety Report 9161908 (Version 1)
Quarter: 2013Q1

REPORT INFORMATION
  Report Type: Spontaneous
  Country: US (occurrence: None)
  Receive Date: 20130221
  Receipt Date: 20130221
  Transmission Date: 20140127
  Serious: Yes (Other)
  Sender: FDA-Public Use
  Company Number: IMP_06554_2013

PATIENT
  Sex: Male

DRUGS (2)
  1. FENOFIBRATE [Suspect]
     Indication: PRODUCT USED FOR UNKNOWN INDICATION
     Dosage: (DF)?
     Dates: start: 20121125, end: 20121225
  2. [1]HIGH BLOOD [PRESSURE MEDICATION] [Concomitant]

REACTIONS (5)
  - Malaise [None]
  - Diarrhoea [None]
  - Flatulence [None]
  - Weight decreased [None]
  - Impaired work ability [None]
